FAERS Safety Report 4480152-8 (Version None)
Quarter: 2004Q4

REPORT INFORMATION
  Report Type: 
  Country: None (occurrence: None)
  Receive Date: 20041018
  Receipt Date: 20041006
  Transmission Date: 20050328
  Serious: Yes (Other)
  Sender: FDA-Public Use
  Company Number: K200401515

PATIENT
  Age: 25 Year
  Sex: Female

DRUGS (2)
  1. NORDETTE-21 [Suspect]
     Indication: ORAL CONTRACEPTION
     Dosage: 1 TAB, QD, ORAL
     Route: 048
     Dates: start: 19940101
  2. NEOSALEDINA (METAMIZOLE SODIUM, ISOMETHEPTENE, CAFFEINE) [Concomitant]

REACTIONS (2)
  - FOOD INTERACTION [None]
  - LYMPHOMA [None]
